FAERS Safety Report 5849571-9 (Version None)
Quarter: 2008Q3

REPORT INFORMATION
  Report Type: 
  Country: None (occurrence: None)
  Receive Date: 20080819
  Receipt Date: 20080808
  Transmission Date: 20090109
  Serious: Yes (Other)
  Sender: FDA-Public Use
  Company Number: JP-JNJFOC-20080802691

PATIENT
  Age: 74 Year
  Sex: Female

DRUGS (5)
  1. REMICADE [Suspect]
     Route: 042
  2. REMICADE [Suspect]
     Indication: RHEUMATOID ARTHRITIS
     Dosage: 12 INFUSIONS ON UNKNOWN DATES
     Route: 042
  3. RHEUMATREX [Concomitant]
     Indication: RHEUMATOID ARTHRITIS
     Route: 048
  4. HYPEN [Concomitant]
     Route: 048
  5. PREDNISONE TAB [Concomitant]
     Dosage: DOSE:4
     Route: 048

REACTIONS (1)
  - RENAL IMPAIRMENT [None]
